FAERS Safety Report 4900630-4 (Version None)
Quarter: 2006Q1

REPORT INFORMATION
  Report Type: 
  Country: None (occurrence: None)
  Receive Date: 20060201
  Receipt Date: 20060113
  Transmission Date: 20060701
  Serious: Yes (Hospitalization, Other)
  Sender: FDA-Public Use
  Company Number: US200601002148

PATIENT
  Age: 56 Year
  Sex: Female

DRUGS (4)
  1. HUMULIN 70/30 [Suspect]
     Indication: DIABETES MELLITUS
     Dosage: SEE IMAGE
  2. HUMULIN N [Suspect]
     Indication: DIABETES MELLITUS
  3. GLUCOPHAGE [Suspect]
     Indication: DIABETES MELLITUS
  4. AMARYL [Concomitant]

REACTIONS (13)
  - BLOOD GLUCOSE INCREASED [None]
  - DIZZINESS [None]
  - ECONOMIC PROBLEM [None]
  - EXERCISE TOLERANCE DECREASED [None]
  - FATIGUE [None]
  - HYPERSOMNIA [None]
  - KIDNEY INFECTION [None]
  - MALAISE [None]
  - POOR QUALITY DRUG ADMINISTERED [None]
  - RENAL IMPAIRMENT [None]
  - STRESS [None]
  - SYNCOPE [None]
  - URINARY TRACT INFECTION [None]
